FAERS Safety Report 12552164 (Version 2)
Quarter: 2016Q3

REPORT INFORMATION
  Report Type: Spontaneous
  Country: US (occurrence: US)
  Receive Date: 20160713
  Receipt Date: 20160722
  Transmission Date: 20161109
  Serious: No
  Sender: FDA-Public Use
  Company Number: US-BAYER-2016-129435

PATIENT
  Age: 52 Year
  Sex: Female

DRUGS (2)
  1. FINACEA [Suspect]
     Active Substance: AZELAIC ACID
     Dosage: UNK
  2. FINACEA [Suspect]
     Active Substance: AZELAIC ACID
     Indication: PRODUCT USED FOR UNKNOWN INDICATION
     Dosage: UNK

REACTIONS (9)
  - Feeling abnormal [None]
  - Musculoskeletal stiffness [None]
  - Product quality issue [None]
  - Depressed mood [Not Recovered/Not Resolved]
  - Wrong technique in product usage process [None]
  - Erythema [Not Recovered/Not Resolved]
  - Drug ineffective [None]
  - Erythema [None]
  - Mass [Not Recovered/Not Resolved]
